FAERS Safety Report 4300777-X (Version None)
Quarter: 2004Q1

REPORT INFORMATION
  Report Type: 
  Country: None (occurrence: None)
  Receive Date: 20040218
  Receipt Date: 20040203
  Transmission Date: 20041129
  Serious: Yes (Hospitalization)
  Sender: FDA-Public Use
  Company Number: 2003IM000799

PATIENT
  Age: 66 Year
  Sex: Female
  Weight: 68.9014 kg

DRUGS (5)
  1. ACTIMMUNE [Suspect]
     Indication: HEPATIC CIRRHOSIS
     Dosage: 100 UG;TIW; SUBCUTANEOUS
     Route: 058
     Dates: start: 20021007
  2. ACTIMMUNE [Suspect]
     Indication: HEPATIC FIBROSIS
     Dosage: 100 UG;TIW; SUBCUTANEOUS
     Route: 058
     Dates: start: 20021007
  3. ACTIMMUNE [Suspect]
     Indication: HEPATITIS C
     Dosage: 100 UG;TIW; SUBCUTANEOUS
     Route: 058
     Dates: start: 20021007
  4. PREMARIN [Concomitant]
  5. LISINOPRIL [Concomitant]

REACTIONS (11)
  - ATRIAL FIBRILLATION [None]
  - BLOOD PRESSURE SYSTOLIC INCREASED [None]
  - DIZZINESS [None]
  - DYSPNOEA [None]
  - ELECTROCARDIOGRAM POOR R-WAVE PROGRESSION [None]
  - ELECTROCARDIOGRAM ST-T CHANGE [None]
  - MITRAL VALVE INCOMPETENCE [None]
  - SINUS ARRHYTHMIA [None]
  - SINUS BRADYCARDIA [None]
  - SUPRAVENTRICULAR EXTRASYSTOLES [None]
  - VENTRICULAR HYPERTROPHY [None]
